FAERS Safety Report 11396956 (Version 1)
Quarter: 2015Q3

REPORT INFORMATION
  Report Type: Spontaneous
  Country: DE (occurrence: DE)
  Receive Date: 20150819
  Receipt Date: 20150819
  Transmission Date: 20151125
  Serious: Yes (Other)
  Sender: FDA-Public Use
  Company Number: PHHY2015DE097682

PATIENT
  Age: 79 Year
  Sex: Male

DRUGS (1)
  1. IMIQUIMOD. [Suspect]
     Active Substance: IMIQUIMOD
     Indication: ACTINIC KERATOSIS
     Route: 061

REACTIONS (4)
  - Skin ulcer [Recovered/Resolved]
  - Drug administration error [Unknown]
  - Inflammation [Recovered/Resolved]
  - Herpes zoster [Unknown]
